FAERS Safety Report 11394872 (Version 1)
Quarter: 2015Q3

REPORT INFORMATION
  Report Type: Spontaneous
  Country: US (occurrence: None)
  Receive Date: 20150817
  Receipt Date: 20150817
  Transmission Date: 20151125
  Serious: Yes (Hospitalization)
  Sender: FDA-Public Use
  Company Number: None

PATIENT
  Age: 52 Year
  Sex: Male
  Weight: 83.92 kg

DRUGS (9)
  1. VITAMIN D [Concomitant]
     Active Substance: CHOLECALCIFEROL
  2. OXYCODONE [Concomitant]
     Active Substance: OXYCODONE
  3. MORPHINE [Concomitant]
     Active Substance: MORPHINE
  4. ROBAXIN [Concomitant]
     Active Substance: METHOCARBAMOL
  5. GABAPENTIN. [Concomitant]
     Active Substance: GABAPENTIN
  6. HUMIRA [Suspect]
     Active Substance: ADALIMUMAB
     Indication: ANKYLOSING SPONDYLITIS
     Dosage: 1 INJECTION ONCE WEEKLY GIVEN INTO/UNDER THE SKIN
     Dates: start: 20070801, end: 20150814
  7. PIROXICAM. [Concomitant]
     Active Substance: PIROXICAM
  8. LIPITOR [Concomitant]
     Active Substance: ATORVASTATIN CALCIUM
  9. FOLIC ACID. [Concomitant]
     Active Substance: FOLIC ACID

REACTIONS (1)
  - Infection [None]

NARRATIVE: CASE EVENT DATE: 20130801
